FAERS Safety Report 7280886-6 (Version None)
Quarter: 2011Q1

REPORT INFORMATION
  Report Type: 
  Country: None (occurrence: None)
  Receive Date: 20110208
  Receipt Date: 20110131
  Transmission Date: 20110831
  Serious: Yes (Hospitalization)
  Sender: FDA-Public Use
  Company Number: HK-ABBOTT-10P-075-0684750-00

PATIENT
  Age: 37 Year
  Sex: Female

DRUGS (10)
  1. ABSIDIA COERULEA EXTRACT [Suspect]
     Indication: PRODUCT USED FOR UNKNOWN INDICATION
     Dates: start: 20060101
  2. SIBUTRAMINE HYDROCHLORIDE MONOHYDRATE [Suspect]
     Indication: PRODUCT USED FOR UNKNOWN INDICATION
     Dates: start: 20060101
  3. PHENTERMINE [Suspect]
     Indication: PRODUCT USED FOR UNKNOWN INDICATION
     Dates: start: 20060101
  4. OLEANOLIC ACID [Suspect]
     Indication: PRODUCT USED FOR UNKNOWN INDICATION
     Dates: start: 20060101
  5. PARACETAMOL [Suspect]
     Indication: PRODUCT USED FOR UNKNOWN INDICATION
     Dates: start: 20060101
  6. ALOE-EMODIN [Suspect]
     Indication: PRODUCT USED FOR UNKNOWN INDICATION
  7. CAFFEINE [Suspect]
     Indication: PRODUCT USED FOR UNKNOWN INDICATION
     Dates: start: 20060101
  8. EMODIN [Suspect]
     Indication: PRODUCT USED FOR UNKNOWN INDICATION
  9. PHYSCION [Suspect]
     Indication: PRODUCT USED FOR UNKNOWN INDICATION
  10. N-BISDESMETHYL-SIBUTRAMINE [Suspect]
     Indication: PRODUCT USED FOR UNKNOWN INDICATION
     Dates: start: 20060101

REACTIONS (1)
  - PSYCHOTIC DISORDER [None]
